FAERS Safety Report 9721414 (Version 1)
Quarter: 2013Q4

REPORT INFORMATION
  Report Type: Spontaneous
  Country: TR (occurrence: TR)
  Receive Date: 20131129
  Receipt Date: 20131129
  Transmission Date: 20140711
  Serious: Yes (Hospitalization)
  Sender: FDA-Public Use
  Company Number: TR-ASTRAZENECA-2013SE85855

PATIENT
  Age: 37 Year
  Sex: Female

DRUGS (7)
  1. QUETIAPINE [Suspect]
     Route: 048
  2. QUETIAPINE [Suspect]
     Route: 048
  3. LORAZEPAM [Suspect]
  4. SULBACTUM-AMPICILLIN [Suspect]
  5. VALPROIC ACID [Concomitant]
  6. LITHIUM [Concomitant]
  7. LAMOTRIGINE [Concomitant]

REACTIONS (4)
  - Drug reaction with eosinophilia and systemic symptoms [Recovered/Resolved]
  - Encephalitis autoimmune [Recovered/Resolved]
  - Epstein-Barr virus infection [Recovered/Resolved]
  - Inappropriate antidiuretic hormone secretion [Recovered/Resolved]
